FAERS Safety Report 14882540 (Version 2)
Quarter: 2018Q4

REPORT INFORMATION
  Report Type: Report from Study
  Country: BR (occurrence: BR)
  Receive Date: 20180511
  Receipt Date: 20181130
  Transmission Date: 20190204
  Serious: Yes (Death, Other)
  Sender: FDA-Public Use
  Company Number: BR-SA-2018SA124889

PATIENT
  Age: 1 Day
  Sex: Male

DRUGS (1)
  1. INSULIN GLARGINE [Suspect]
     Active Substance: INSULIN GLARGINE
     Indication: FOETAL EXPOSURE DURING PREGNANCY
     Dosage: UNK UNK, UNK
     Route: 064

REACTIONS (4)
  - Fluid retention [Fatal]
  - Foetal exposure during pregnancy [Unknown]
  - Immature respiratory system [Fatal]
  - Premature baby [Unknown]

NARRATIVE: CASE EVENT DATE: 201701
